FAERS Safety Report 6378712-2 (Version None)
Quarter: 2009Q3

REPORT INFORMATION
  Report Type: 
  Country: None (occurrence: None)
  Receive Date: 20090928
  Receipt Date: 20090918
  Transmission Date: 20100115
  Serious: Yes (Hospitalization, Other)
  Sender: FDA-Public Use
  Company Number: US-AMGEN-KDL355530

PATIENT
  Sex: Male

DRUGS (1)
  1. ENBREL [Suspect]
     Indication: PSORIATIC ARTHROPATHY
     Route: 058
     Dates: start: 20050605

REACTIONS (4)
  - INCISION SITE INFECTION [None]
  - LYMPHADENECTOMY [None]
  - MALIGNANT MELANOMA [None]
  - STAPHYLOCOCCAL INFECTION [None]
